FAERS Safety Report 15434425 (Version 6)
Quarter: 2021Q3

REPORT INFORMATION
  Report Type: Report from Study
  Country: US (occurrence: US)
  Receive Date: 20180927
  Receipt Date: 20210817
  Transmission Date: 20211014
  Serious: Yes (Other)
  Sender: FDA-Public Use
  Company Number: PHHY2018US093806

PATIENT
  Age: 6 Year
  Sex: Female
  Weight: 22.1 kg

DRUGS (16)
  1. DIAZEPAM. [Concomitant]
     Active Substance: DIAZEPAM
     Indication: PRODUCT USED FOR UNKNOWN INDICATION
     Route: 065
  2. DIPHENHYDRAMINE. [Concomitant]
     Active Substance: DIPHENHYDRAMINE
     Indication: PRODUCT USED FOR UNKNOWN INDICATION
     Route: 065
  3. SENNA [Concomitant]
     Active Substance: SENNA LEAF\SENNOSIDES\SENNOSIDES A AND B
     Indication: PRODUCT USED FOR UNKNOWN INDICATION
     Route: 065
  4. TYLENOL [Suspect]
     Active Substance: ACETAMINOPHEN
     Indication: PYREXIA
     Dosage: UNK
     Route: 065
     Dates: start: 20180901
  5. ONDANSETRON [Concomitant]
     Active Substance: ONDANSETRON
     Indication: PRODUCT USED FOR UNKNOWN INDICATION
     Route: 065
  6. ALLOPURINOL. [Concomitant]
     Active Substance: ALLOPURINOL
     Indication: PRODUCT USED FOR UNKNOWN INDICATION
     Route: 065
  7. MELATONIN [Concomitant]
     Active Substance: MELATONIN
     Indication: PRODUCT USED FOR UNKNOWN INDICATION
     Route: 065
  8. KYMRIAH [Suspect]
     Active Substance: TISAGENLECLEUCEL
     Indication: ACUTE LYMPHOCYTIC LEUKAEMIA
     Dosage: 1 UNK, ONCE/SINGLE (0.3X 10^8 POSITIVE VIABLE T CELLS)
     Route: 042
     Dates: start: 20180827
  9. HYDROMORPHONE [Concomitant]
     Active Substance: HYDROMORPHONE
     Indication: PRODUCT USED FOR UNKNOWN INDICATION
     Route: 065
  10. LEVETIRACETAM. [Concomitant]
     Active Substance: LEVETIRACETAM
     Indication: PRODUCT USED FOR UNKNOWN INDICATION
     Route: 065
  11. BENZOCAINE. [Concomitant]
     Active Substance: BENZOCAINE
     Indication: PRODUCT USED FOR UNKNOWN INDICATION
     Route: 061
  12. FRESH FROZEN PLASMA [Concomitant]
     Active Substance: HUMAN PLASMA
     Indication: PLATELET COUNT DECREASED
     Dosage: 2 U, UNK
     Route: 065
     Dates: start: 20180903, end: 20180903
  13. GABAPENTIN. [Concomitant]
     Active Substance: GABAPENTIN
     Indication: NEUROPATHY PERIPHERAL
     Route: 065
  14. METHADONE [Concomitant]
     Active Substance: METHADONE HYDROCHLORIDE
     Indication: PRODUCT USED FOR UNKNOWN INDICATION
     Route: 065
  15. POLYETHYLENE GLYCOL 3350. [Concomitant]
     Active Substance: POLYETHYLENE GLYCOL 3350
     Indication: PRODUCT USED FOR UNKNOWN INDICATION
     Route: 065
  16. POSACONAZOLE [Concomitant]
     Active Substance: POSACONAZOLE
     Indication: PRODUCT USED FOR UNKNOWN INDICATION
     Route: 065

REACTIONS (27)
  - Pyrexia [Recovered/Resolved]
  - Encephalopathy [Unknown]
  - Acute kidney injury [Recovered/Resolved]
  - Sleep talking [Unknown]
  - Mucosal inflammation [Recovered/Resolved]
  - Tachycardia [Unknown]
  - Atelectasis [Unknown]
  - Hypotension [Unknown]
  - Dermatitis exfoliative generalised [Recovered/Resolved]
  - Liver function test increased [Unknown]
  - Pain [Unknown]
  - Hypoxia [Unknown]
  - Cardiac failure [Recovering/Resolving]
  - Cytokine release syndrome [Recovering/Resolving]
  - Depressed level of consciousness [Unknown]
  - Aspiration [Unknown]
  - Pulmonary oedema [Unknown]
  - Delirium [Unknown]
  - Pneumonia [Unknown]
  - Rash erythematous [Unknown]
  - Cardiomegaly [Unknown]
  - Agitation [Unknown]
  - Neurotoxicity [Recovered/Resolved]
  - Confusional state [Unknown]
  - Hallucination [Recovered/Resolved]
  - Decreased appetite [Recovered/Resolved]
  - Lip swelling [Unknown]

NARRATIVE: CASE EVENT DATE: 20180829
